FAERS Safety Report 7571738-2 (Version None)
Quarter: 2011Q2

REPORT INFORMATION
  Report Type: 
  Country: None (occurrence: None)
  Receive Date: 20110624
  Receipt Date: 20110620
  Transmission Date: 20111010
  Serious: Yes (Hospitalization, Disabling)
  Sender: FDA-Public Use
  Company Number: FI-SANOFI-AVENTIS-2011SA038267

PATIENT
  Sex: Male

DRUGS (5)
  1. I.V. SOLUTIONS [Concomitant]
     Route: 042
  2. ANTIBIOTICS [Concomitant]
     Route: 042
  3. GLIMEPIRIDE [Suspect]
     Route: 048
  4. METFORMIN HCL [Concomitant]
     Route: 048
  5. ANALGESICS [Concomitant]
     Route: 065

REACTIONS (4)
  - LOSS OF CONSCIOUSNESS [None]
  - EPILEPSY [None]
  - HYPOGLYCAEMIA [None]
  - BRAIN INJURY [None]
